FAERS Safety Report 7535229-7 (Version None)
Quarter: 2011Q2

REPORT INFORMATION
  Report Type: 
  Country: None (occurrence: None)
  Receive Date: 20110609
  Receipt Date: 20071210
  Transmission Date: 20111010
  Serious: Yes (Other)
  Sender: FDA-Public Use
  Company Number: PHNR2007AU02188

PATIENT
  Sex: Female

DRUGS (5)
  1. CHLORPROMAZINE [Concomitant]
  2. LAMICTAL [Concomitant]
  3. LITHIUM CARBONATE [Concomitant]
  4. CLOZAPINE [Suspect]
     Dosage: 200-600MG DAILY
     Route: 048
     Dates: start: 20060501
  5. HALOPERIDOL [Concomitant]

REACTIONS (2)
  - MANIA [None]
  - EPILEPTIC AURA [None]
